FAERS Safety Report 25674663 (Version 1)
Quarter: 2025Q3

REPORT INFORMATION
  Report Type: Spontaneous
  Country: EU (occurrence: EU)
  Receive Date: 20250813
  Receipt Date: 20250813
  Transmission Date: 20251021
  Serious: Yes (Death)
  Sender: RANBAXY
  Company Number: EU-AFSSAPS-RS2025000412

PATIENT
  Age: 85 Year
  Sex: Male
  Weight: 62 kg

DRUGS (3)
  1. GABAPENTIN [Suspect]
     Active Substance: GABAPENTIN
     Indication: Aggression
     Dosage: 400 MILLIGRAM, DAILY
     Route: 048
     Dates: start: 20241106, end: 20250119
  2. OLANZAPINE [Suspect]
     Active Substance: OLANZAPINE
     Indication: Aggression
     Dosage: 15 MILLIGRAM, DAILY
     Route: 048
     Dates: start: 20250110, end: 20250119
  3. LOXAPINE [Suspect]
     Active Substance: LOXAPINE
     Indication: Aggression
     Dosage: 12 MILLIGRAM, DAILY
     Route: 048
     Dates: start: 20250112, end: 20250119

REACTIONS (1)
  - Death [Fatal]

NARRATIVE: CASE EVENT DATE: 20250119
